FAERS Safety Report 5095162-X (Version None)
Quarter: 2006Q3

REPORT INFORMATION
  Report Type: 
  Country: None (occurrence: None)
  Receive Date: 20060901
  Receipt Date: 20060626
  Transmission Date: 20061208
  Serious: Yes (Hospitalization)
  Sender: FDA-Public Use
  Company Number: 2006AP03512

PATIENT
  Age: 28301 Day
  Sex: Male
  Weight: 47.4 kg

DRUGS (16)
  1. CASODEX [Suspect]
     Indication: PROSTATE CANCER
     Route: 048
     Dates: start: 20060428, end: 20060623
  2. LEUPLIN [Concomitant]
     Indication: PROSTATE CANCER
     Route: 058
     Dates: start: 20060428
  3. PIPERACILLIN SODIUM [Concomitant]
     Indication: PNEUMONIA BACTERIAL
     Route: 041
     Dates: start: 20060529
  4. SULBACTAM SODIUM, AMPICILLIN SODIUM [Concomitant]
     Indication: PNEUMONIA BACTERIAL
     Route: 041
     Dates: start: 20060529
  5. MINOCYCLINE HYDROCHLORIDE [Concomitant]
     Indication: PNEUMONIA BACTERIAL
     Route: 041
     Dates: start: 20060529
  6. CALTAN [Concomitant]
     Route: 048
  7. MUCOSTA [Concomitant]
     Route: 048
  8. FOLIAMIN [Concomitant]
     Route: 048
  9. PLETAL [Concomitant]
     Route: 048
  10. SELENICA-R [Concomitant]
     Route: 048
  11. METLIGINE [Concomitant]
     Route: 048
  12. ALLOPURINOL [Concomitant]
     Route: 048
  13. ROCALTROL [Concomitant]
     Route: 048
  14. PREDNISOLONE [Concomitant]
     Indication: INTERSTITIAL LUNG DISEASE
     Dates: start: 20060609, end: 20060630
  15. PREDNISOLONE [Concomitant]
     Dates: start: 20060701, end: 20060707
  16. PREDNISOLONE [Concomitant]
     Dates: start: 20060708

REACTIONS (7)
  - DRUG INEFFECTIVE [None]
  - EOSINOPHILIC PNEUMONIA [None]
  - HEPATITIS C POSITIVE [None]
  - INTERSTITIAL LUNG DISEASE [None]
  - PLATELET COUNT DECREASED [None]
  - SPUTUM CULTURE POSITIVE [None]
  - STAPHYLOCOCCAL INFECTION [None]
